FAERS Safety Report 9976097 (Version 1)
Quarter: 2014Q1

REPORT INFORMATION
  Report Type: Spontaneous
  Country: ES (occurrence: ES)
  Receive Date: 20140306
  Receipt Date: 20140306
  Transmission Date: 20141002
  Serious: Yes (Other)
  Sender: FDA-Public Use
  Company Number: PHHY2014ES025991

PATIENT
  Age: 25 Year
  Sex: Female

DRUGS (7)
  1. IFOSFAMIDE [Suspect]
     Indication: METASTASES TO LUNG
  2. CARBOPLATIN [Suspect]
     Indication: MALIGNANT FIBROUS HISTIOCYTOMA
  3. ETOPOSIDE [Suspect]
     Indication: MALIGNANT FIBROUS HISTIOCYTOMA
  4. DOXORUBICIN [Suspect]
     Indication: METASTASES TO LUNG
  5. DOCETAXEL [Suspect]
     Indication: MALIGNANT NEOPLASM PROGRESSION
  6. GEMCITABINE [Suspect]
     Indication: MALIGNANT NEOPLASM PROGRESSION
  7. ENALAPRIL [Concomitant]
     Dosage: 20 MG, PER DAY

REACTIONS (15)
  - Pleural effusion [Unknown]
  - Pericardial effusion [Unknown]
  - Pain [Unknown]
  - Back pain [Unknown]
  - Paresis [Unknown]
  - Abasia [Unknown]
  - Metastases to lung [Recovering/Resolving]
  - Respiratory disorder [Unknown]
  - Malignant neoplasm progression [Unknown]
  - Dyspnoea [Unknown]
  - Asthenia [Unknown]
  - Haematotoxicity [Unknown]
  - Anaemia [Unknown]
  - Neutropenia [Unknown]
  - Therapeutic response decreased [Unknown]
